FAERS Safety Report 5647646-0 (Version None)
Quarter: 2008Q1

REPORT INFORMATION
  Report Type: 
  Country: None (occurrence: None)
  Receive Date: 20080303
  Receipt Date: 20080220
  Transmission Date: 20080703
  Serious: Yes (Other)
  Sender: FDA-Public Use
  Company Number: US-PFIZER INC-2007052958

PATIENT
  Sex: Female
  Weight: 113.63 kg

DRUGS (11)
  1. DILANTIN [Suspect]
     Indication: EPILEPSY
  2. PHENOBARBITAL TAB [Concomitant]
  3. LAMICTAL [Concomitant]
  4. OMEPRAZOLE [Concomitant]
  5. LASIX [Concomitant]
  6. POTASSIUM CHLORIDE [Concomitant]
  7. ALBUTEROL [Concomitant]
  8. ALBUTEROL [Concomitant]
  9. ADVAIR DISKUS 100/50 [Concomitant]
  10. NASACORT [Concomitant]
  11. OXYGEN [Concomitant]

REACTIONS (2)
  - ANTICONVULSANT DRUG LEVEL INCREASED [None]
  - HYSTERECTOMY [None]
